FAERS Safety Report 5197256-7 (Version None)
Quarter: 2006Q4

REPORT INFORMATION
  Report Type: 
  Country: None (occurrence: None)
  Receive Date: 20061227
  Receipt Date: 20061218
  Transmission Date: 20070319
  Serious: Yes (Other)
  Sender: FDA-Public Use
  Company Number: 06-0153PO

PATIENT
  Age: 24 Year
  Sex: Male

DRUGS (1)
  1. MEFENAMIC ACID [Suspect]
     Indication: THERAPEUTIC PROCEDURE
     Dosage: 500 MG, TID, X1 DAY, PO
     Route: 048
     Dates: start: 20061121, end: 20061121

REACTIONS (4)
  - ASTHENIA [None]
  - DIPLEGIA [None]
  - HYPOAESTHESIA ORAL [None]
  - MUSCULOSKELETAL STIFFNESS [None]
